FAERS Safety Report 16545936 (Version 1)
Quarter: 2019Q3

REPORT INFORMATION
  Report Type: Spontaneous
  Country: JP (occurrence: JP)
  Receive Date: 20190709
  Receipt Date: 20190709
  Transmission Date: 20191004
  Serious: Yes (Hospitalization, Other)
  Sender: FDA-Public Use
  Company Number: JP-JNJFOC-20190704191

PATIENT
  Age: 8 Decade

DRUGS (1)
  1. XARELTO [Suspect]
     Active Substance: RIVAROXABAN
     Indication: ATRIAL FIBRILLATION
     Dosage: 10 MG, QD
     Route: 048

REACTIONS (5)
  - Activated partial thromboplastin time prolonged [Unknown]
  - Limb injury [Unknown]
  - Prothrombin time prolonged [Unknown]
  - Traumatic haematoma [Unknown]
  - Skin necrosis [Unknown]
